FAERS Safety Report 8313947-0 (Version None)
Quarter: 2012Q2

REPORT INFORMATION
  Report Type: 
  Country: None (occurrence: None)
  Receive Date: 20120426
  Receipt Date: 20071112
  Transmission Date: 20120825
  Serious: Yes (Hospitalization)
  Sender: FDA-Public Use
  Company Number: US-TEVA-US021692

PATIENT
  Age: 45 Year
  Sex: Female

DRUGS (1)
  1. PROVIGIL [Suspect]
     Dosage: 100 MILLIGRAM;
     Route: 048
     Dates: start: 20071109

REACTIONS (2)
  - PALPITATIONS [None]
  - CHEST PAIN [None]
